FAERS Safety Report 10415060 (Version 2)
Quarter: 2014Q3

REPORT INFORMATION
  Report Type: Report from Study
  Country: KR (occurrence: KR)
  Receive Date: 20140828
  Receipt Date: 20140904
  Transmission Date: 20150326
  Serious: Yes (Hospitalization)
  Sender: FDA-Public Use
  Company Number: KR-ROCHE-1453090

PATIENT
  Age: 32 Year
  Sex: Female
  Weight: 65 kg

DRUGS (40)
  1. CISPLATIN. [Suspect]
     Active Substance: CISPLATIN
     Indication: HER-2 POSITIVE GASTRIC CANCER
     Dosage: MOST RECENT DOSE ON 31/JUL/2014
     Route: 042
     Dates: start: 20140711
  2. JURNISTA [Concomitant]
     Active Substance: HYDROMORPHONE HYDROCHLORIDE
     Indication: ABDOMINAL PAIN UPPER
     Route: 048
     Dates: start: 20140703, end: 20140730
  3. MAGNESIUM OXIDE. [Concomitant]
     Active Substance: MAGNESIUM OXIDE
     Indication: CONSTIPATION
     Route: 048
     Dates: start: 20140710, end: 20140730
  4. DEXAMETHASONE. [Concomitant]
     Active Substance: DEXAMETHASONE
     Indication: NAUSEA
     Route: 048
     Dates: start: 20140712, end: 20140803
  5. MACPERAN [Concomitant]
     Indication: NAUSEA
     Route: 048
     Dates: start: 20140731, end: 20140807
  6. DENOGAN [Concomitant]
     Indication: PYREXIA
     Route: 042
     Dates: start: 20140821, end: 20140825
  7. CURAN [Concomitant]
     Indication: GASTROINTESTINAL HAEMORRHAGE
     Route: 042
     Dates: start: 20140827, end: 20140827
  8. SMECTA [Concomitant]
     Active Substance: MONTMORILLONITE
     Indication: DIARRHOEA
     Route: 048
     Dates: start: 20140825, end: 20140825
  9. LAMINA-G [Concomitant]
     Indication: ANAEMIA
     Route: 048
     Dates: start: 20140822
  10. FRAGMIN INJECTABLE [Concomitant]
     Indication: PULMONARY EMBOLISM
     Dosage: 10000U
     Route: 058
     Dates: start: 20140711
  11. ONSERAN [Concomitant]
     Dosage: FOR PAIN CONTROL
     Route: 042
     Dates: start: 20140824, end: 20140824
  12. MATRIFEN [Concomitant]
     Active Substance: FENTANYL
     Dosage: FOR PAIN CONTROL
     Route: 050
     Dates: start: 20140827, end: 20140827
  13. TRASTUZUMAB [Suspect]
     Active Substance: TRASTUZUMAB
     Indication: HER-2 POSITIVE GASTRIC CANCER
     Dosage: LOADING DOSE, MOST RECENT DOSE ON 31/JUL/2014
     Route: 042
     Dates: start: 20140711
  14. TRASTUZUMAB [Suspect]
     Active Substance: TRASTUZUMAB
     Dosage: MAINTAINENCE DOSE, MOST RECENT DOSE ON 31/JUL/2014
     Route: 042
  15. NEXIUM [Concomitant]
     Active Substance: ESOMEPRAZOLE MAGNESIUM
     Indication: EPIGASTRIC DISCOMFORT
     Route: 048
     Dates: start: 20140827, end: 20140827
  16. LANSTON [Concomitant]
     Active Substance: LANSOPRAZOLE
     Indication: DYSPEPSIA
     Route: 048
     Dates: start: 20140630, end: 20140821
  17. MAGNESIUM OXIDE. [Concomitant]
     Active Substance: MAGNESIUM OXIDE
     Route: 048
     Dates: start: 20140822, end: 20140822
  18. LASIX [Concomitant]
     Active Substance: FUROSEMIDE
     Route: 048
     Dates: start: 20140711, end: 20140731
  19. MANNITOL 20% [Concomitant]
     Route: 042
     Dates: start: 20140711, end: 20140731
  20. PETHIDINE [Concomitant]
     Active Substance: MEPERIDINE
     Route: 030
     Dates: start: 20140823, end: 20140823
  21. ALBIS [Concomitant]
     Active Substance: BISMUTH SUBCITRATE\RANITIDINE HYDROCHLORIDE\SUCRALFATE
     Indication: DYSPEPSIA
     Route: 048
     Dates: start: 20140630, end: 20140821
  22. EMEND [Concomitant]
     Active Substance: APREPITANT
     Indication: NAUSEA
     Route: 048
     Dates: start: 20140711, end: 20140731
  23. ALBUMIN 20% [Concomitant]
     Indication: HYPOALBUMINAEMIA
     Route: 042
     Dates: start: 20140827, end: 20140827
  24. DUPHALAC-EASY [Concomitant]
     Indication: CONSTIPATION
     Route: 065
     Dates: start: 20140710, end: 20140730
  25. MUCOSTEN [Concomitant]
     Dosage: FOR CT POST MEDICATION
     Route: 042
     Dates: start: 20140825, end: 20140827
  26. ULCERLMIN [Concomitant]
     Active Substance: SUCRALFATE
     Indication: ANAEMIA
     Route: 048
     Dates: start: 20140822
  27. TAZOPERAN [Concomitant]
     Indication: INFECTION
     Route: 042
     Dates: start: 20140821, end: 20140827
  28. DISGREN (SOUTH KOREA) [Concomitant]
     Indication: PULMONARY EMBOLISM
     Route: 048
     Dates: start: 20140824
  29. RABIET [Concomitant]
     Indication: EPIGASTRIC DISCOMFORT
     Route: 048
     Dates: start: 20140825, end: 20140825
  30. CAPECITABINE [Suspect]
     Active Substance: CAPECITABINE
     Indication: HER-2 POSITIVE GASTRIC CANCER
     Dosage: MOST RECENT DOSE ON 14/AUG/2014
     Route: 048
     Dates: start: 20140711
  31. GELMA [Concomitant]
     Indication: DYSPEPSIA
     Route: 048
     Dates: start: 20140626, end: 20140826
  32. FRAGMIN INJECTABLE [Concomitant]
     Indication: PULMONARY EMBOLISM
     Dosage: 2500U
     Route: 058
     Dates: start: 20140711
  33. MACPERAN [Concomitant]
     Route: 042
     Dates: start: 20140823, end: 20140827
  34. MEGACE F [Concomitant]
     Indication: DECREASED APPETITE
     Route: 048
     Dates: start: 20140731, end: 20140827
  35. PLACEBO [Suspect]
     Active Substance: UNSPECIFIED INGREDIENT
     Indication: HER-2 POSITIVE GASTRIC CANCER
     Dosage: MOST RECENT DOSE WAS ON 31/JUL/2014
     Route: 042
     Dates: start: 20140711
  36. STILLEN [Concomitant]
     Indication: DYSPEPSIA
     Route: 048
     Dates: start: 20140626, end: 20140821
  37. EMEND [Concomitant]
     Active Substance: APREPITANT
     Route: 048
     Dates: start: 20140712, end: 20140802
  38. ONSERAN [Concomitant]
     Route: 042
     Dates: start: 20140711, end: 20140731
  39. FURTMAN INJ. [Concomitant]
     Dosage: FOR NUTRITION
     Route: 042
     Dates: start: 20140827, end: 20140827
  40. MORPHINE SULFATE. [Concomitant]
     Active Substance: MORPHINE SULFATE
     Dosage: FOR PAIN CONTROL
     Route: 042
     Dates: start: 20140827, end: 20140827

REACTIONS (1)
  - Dysarthria [Recovered/Resolved]

NARRATIVE: CASE EVENT DATE: 20140820
